FAERS Safety Report 5485014-5 (Version None)
Quarter: 2007Q4

REPORT INFORMATION
  Report Type: 
  Country: None (occurrence: None)
  Receive Date: 20071015
  Receipt Date: 20071004
  Transmission Date: 20080405
  Serious: Yes (Hospitalization)
  Sender: FDA-Public Use
  Company Number: PHRM2007FR02326

PATIENT
  Age: 70 Year
  Sex: Female

DRUGS (1)
  1. EXELON [Suspect]
     Indication: DEMENTIA
     Dosage: 3 MG/DAY
     Route: 048
     Dates: start: 20070101, end: 20070101

REACTIONS (4)
  - DIZZINESS [None]
  - FALL [None]
  - FEMORAL NECK FRACTURE [None]
  - RADIUS FRACTURE [None]
